FAERS Safety Report 8038504-5 (Version None)
Quarter: 2012Q1

REPORT INFORMATION
  Report Type: 
  Country: None (occurrence: None)
  Receive Date: 20120111
  Receipt Date: 20111208
  Transmission Date: 20120608
  Serious: No
  Sender: FDA-Public Use
  Company Number: US-AMGEN-USASP2011065407

PATIENT
  Age: 36 Year
  Sex: Female

DRUGS (2)
  1. ENBREL [Suspect]
     Indication: PSORIATIC ARTHROPATHY
     Dosage: 50 MG, 2 TIMES/WK
     Dates: start: 20111001
  2. BENADRYL [Concomitant]

REACTIONS (5)
  - INJECTION SITE MASS [None]
  - INJECTION SITE PRURITUS [None]
  - INJECTION SITE REACTION [None]
  - INJECTION SITE WARMTH [None]
  - INJECTION SITE ERYTHEMA [None]
